FAERS Safety Report 15669527 (Version 8)
Quarter: 2019Q4

REPORT INFORMATION
  Report Type: Spontaneous
  Country: FR (occurrence: FR)
  Receive Date: 20181129
  Receipt Date: 20191030
  Transmission Date: 20200122
  Serious: Yes (Hospitalization)
  Sender: FDA-Public Use
  Company Number: FR-CELGENEUS-FRA-20181106708

PATIENT
  Age: 75 Year
  Sex: Male

DRUGS (24)
  1. EXJADE [Concomitant]
     Active Substance: DEFERASIROX
     Dosage: 720 MILLIGRAM
     Route: 048
     Dates: start: 20181109, end: 20181114
  2. ALLOPURINOL. [Concomitant]
     Active Substance: ALLOPURINOL
     Indication: PROPHYLAXIS
  3. AZACITIDINE. [Suspect]
     Active Substance: AZACITIDINE
     Indication: ACUTE MYELOID LEUKAEMIA
     Dosage: 75 MILLIGRAM/SQ. METER
     Route: 058
     Dates: start: 20180305, end: 20181021
  4. LASILIX [Concomitant]
     Active Substance: FUROSEMIDE
     Indication: PROPHYLAXIS
  5. ALLOPURINOL. [Concomitant]
     Active Substance: ALLOPURINOL
     Indication: PROPHYLAXIS
     Dosage: 300 MILLIGRAM
     Route: 048
     Dates: start: 20180302
  6. VENETOCLAX. [Concomitant]
     Active Substance: VENETOCLAX
     Indication: ACUTE MYELOID LEUKAEMIA
     Dosage: 100 MILLIGRAM
     Route: 048
     Dates: start: 20180305, end: 20180306
  7. VENETOCLAX. [Concomitant]
     Active Substance: VENETOCLAX
     Dosage: 200 MILLIGRAM
     Route: 048
     Dates: start: 20180306, end: 20180306
  8. VENETOCLAX. [Concomitant]
     Active Substance: VENETOCLAX
     Dosage: 400 MILLIGRAM
     Route: 048
     Dates: start: 20180307
  9. EXJADE [Concomitant]
     Active Substance: DEFERASIROX
     Dosage: 90 MILLIGRAM
     Route: 048
     Dates: start: 20180914, end: 20181102
  10. MICROLAX [Concomitant]
     Dosage: 90 MILLIGRAM
     Route: 048
     Dates: start: 20180914, end: 20181102
  11. FUROZEMIDE [Concomitant]
     Indication: PROPHYLAXIS
     Route: 041
     Dates: start: 20180307
  12. GUTRON [Concomitant]
     Active Substance: MIDODRINE
     Indication: ORTHOSTATIC HYPOTENSION
     Dosage: 2.5 MILLIGRAM
     Route: 048
     Dates: start: 20180614
  13. EXJADE [Concomitant]
     Active Substance: DEFERASIROX
     Dosage: 90 MILLIGRAM
     Route: 048
     Dates: start: 20181123
  14. ELUDRIL [Concomitant]
     Indication: PROPHYLAXIS
     Dosage: 2 DOSAGE FORMS
     Route: 050
     Dates: start: 20180924
  15. ATORVASTATIN [Concomitant]
     Active Substance: ATORVASTATIN
     Indication: DYSLIPIDAEMIA
     Route: 048
     Dates: start: 2008
  16. EXJADE [Concomitant]
     Active Substance: DEFERASIROX
     Indication: IRON OVERLOAD
     Dosage: 1080 MILLIGRAM
     Route: 048
     Dates: start: 20180914, end: 20181102
  17. EXJADE [Concomitant]
     Active Substance: DEFERASIROX
     Dosage: 720 MILLIGRAM
     Route: 048
     Dates: start: 20181123
  18. ESOMEPRAZOLE. [Concomitant]
     Active Substance: ESOMEPRAZOLE MAGNESIUM
     Indication: PROPHYLAXIS
     Dosage: 40 MILLIGRAM
     Route: 048
     Dates: start: 20180924
  19. MICROLAX [Concomitant]
     Indication: CONSTIPATION
     Route: 054
     Dates: start: 20180527
  20. MICROLAX [Concomitant]
     Dosage: 720 MILLIGRAM
     Route: 048
     Dates: start: 20181109
  21. BICARBONATE SODIUM [Concomitant]
     Active Substance: SODIUM BICARBONATE
     Indication: PROPHYLAXIS
     Dosage: 2 DOSAGE FORMS
     Route: 050
     Dates: start: 20180924
  22. LASILIX [Concomitant]
     Active Substance: FUROSEMIDE
     Indication: OEDEMA PERIPHERAL
     Dosage: 20 MILLIGRAM
     Route: 041
     Dates: start: 20180328
  23. PROCORALAN [Concomitant]
     Active Substance: IVABRADINE
     Indication: MYOCARDIAL ISCHAEMIA
     Dosage: 5 MILLIGRAM
     Route: 048
     Dates: start: 20180618
  24. FUNGIZONE [Concomitant]
     Active Substance: AMPHOTERICIN B
     Indication: PROPHYLAXIS
     Dosage: 2 DOSAGE FORMS
     Route: 050
     Dates: start: 20180924

REACTIONS (3)
  - Gastroenteritis [Recovered/Resolved]
  - Colitis [Recovered/Resolved]
  - Febrile neutropenia [Recovered/Resolved]

NARRATIVE: CASE EVENT DATE: 20181102
